FAERS Safety Report 6991436-3 (Version None)
Quarter: 2010Q3

REPORT INFORMATION
  Report Type: 
  Country: None (occurrence: None)
  Receive Date: 20100916
  Receipt Date: 20090825
  Transmission Date: 20110219
  Serious: No
  Sender: FDA-Public Use
  Company Number: US-WYE-H10724109

PATIENT
  Sex: Male
  Weight: 78.09 kg

DRUGS (3)
  1. PRISTIQ [Suspect]
     Indication: DEPRESSION
     Route: 048
     Dates: start: 20081001, end: 20090701
  2. PRISTIQ [Suspect]
     Indication: ANXIETY
     Dosage: BEGAN TO TAPER OFF
     Route: 048
     Dates: start: 20090701
  3. ADDERALL 10 [Concomitant]

REACTIONS (11)
  - ANGER [None]
  - BRUXISM [None]
  - DISTURBANCE IN SEXUAL AROUSAL [None]
  - DRUG WITHDRAWAL SYNDROME [None]
  - FATIGUE [None]
  - LIBIDO DECREASED [None]
  - PARAESTHESIA [None]
  - VERTIGO [None]
  - VISUAL IMPAIRMENT [None]
  - WEIGHT DECREASED [None]
  - WRONG TECHNIQUE IN DRUG USAGE PROCESS [None]
